FAERS Safety Report 17965066 (Version 2)
Quarter: 2020Q3

REPORT INFORMATION
  Report Type: Spontaneous
  Country: FR (occurrence: FR)
  Receive Date: 20200630
  Receipt Date: 20200707
  Transmission Date: 20201103
  Serious: Yes (Hospitalization)
  Sender: FDA-Public Use
  Company Number: NVSC2020FR183267

PATIENT
  Age: 84 Year
  Sex: Female
  Weight: 45 kg

DRUGS (1)
  1. TEGRETOL [Suspect]
     Active Substance: CARBAMAZEPINE
     Indication: CLUSTER HEADACHE
     Dosage: UNK
     Route: 048
     Dates: start: 20200424, end: 20200424

REACTIONS (11)
  - Facial paralysis [Recovered/Resolved]
  - Speech disorder [Unknown]
  - Psychomotor skills impaired [Unknown]
  - Vomiting [Recovered/Resolved]
  - Dysarthria [Recovered/Resolved]
  - Disturbance in attention [Recovered/Resolved]
  - Incorrect dose administered [Recovered/Resolved]
  - Aphasia [Recovered/Resolved]
  - Myoclonus [Recovered/Resolved]
  - Wrong dose [Recovered/Resolved]
  - Product administration error [Recovered/Resolved]

NARRATIVE: CASE EVENT DATE: 202004
